FAERS Safety Report 4664474-3 (Version None)
Quarter: 2005Q2

REPORT INFORMATION
  Report Type: 
  Country: None (occurrence: None)
  Receive Date: 20050518
  Receipt Date: 20050511
  Transmission Date: 20051028
  Serious: Yes (Other)
  Sender: FDA-Public Use
  Company Number: US-BRISTOL-MYERS SQUIBB COMPANY-12965927

PATIENT

DRUGS (1)
  1. TEQUIN [Suspect]

REACTIONS (3)
  - CONVULSION [None]
  - HYPERGLYCAEMIA [None]
  - HYPOGLYCAEMIA [None]
